FAERS Safety Report 7893949-9 (Version None)
Quarter: 2011Q4

REPORT INFORMATION
  Report Type: 
  Country: None (occurrence: None)
  Receive Date: 20111104
  Receipt Date: 20111028
  Transmission Date: 20120403
  Serious: Yes (Other)
  Sender: FDA-Public Use
  Company Number: US-JNJFOC-20110405140

PATIENT
  Sex: Female
  Weight: 86.18 kg

DRUGS (17)
  1. NUCYNTA [Suspect]
     Indication: ANALGESIC THERAPY
     Dosage: TWICE A DAY
     Route: 048
  2. MELOXICAM [Concomitant]
     Indication: PAIN
     Route: 065
  3. NUCYNTA [Suspect]
     Dosage: TWICE A DAY
     Route: 048
  4. NUCYNTA [Suspect]
     Indication: INTERVERTEBRAL DISC DEGENERATION
     Dosage: TWICE A DAY
     Route: 048
  5. WELLBUTRIN XL [Concomitant]
     Indication: DEPRESSION
     Route: 065
  6. NUCYNTA [Suspect]
     Dosage: EVERY FOUR HOURLY ^PRN^
     Route: 048
     Dates: start: 20110407, end: 20110410
  7. BIOTIN [Concomitant]
     Indication: SUPPLEMENTATION THERAPY
     Route: 065
  8. UNKNOWN MEDICATION [Concomitant]
     Route: 065
  9. SYNTHROID [Concomitant]
     Indication: DEPRESSION
     Route: 065
  10. NUCYNTA [Suspect]
     Dosage: EVERY FOUR HOURLY ^PRN^
     Route: 048
     Dates: start: 20110407, end: 20110410
  11. EFFEXOR XR [Concomitant]
     Indication: DEPRESSION
     Route: 065
  12. ADDERALL 5 [Concomitant]
     Indication: ATTENTION DEFICIT/HYPERACTIVITY DISORDER
     Dosage: 2 CAPSULES, ONCE A DAY
     Route: 048
  13. CLARITIN [Concomitant]
     Indication: SEASONAL ALLERGY
     Route: 065
  14. NUCYNTA [Suspect]
     Indication: PAIN
     Dosage: EVERY FOUR HOURLY ^PRN^
     Route: 048
     Dates: start: 20110407, end: 20110410
  15. ZANTAC [Concomitant]
     Indication: PRODUCT USED FOR UNKNOWN INDICATION
     Route: 065
  16. VICODIN [Concomitant]
     Indication: ANALGESIC THERAPY
     Route: 065
  17. MOTRIN [Concomitant]
     Indication: PRODUCT USED FOR UNKNOWN INDICATION
     Dosage: TWICE A DAY
     Route: 065

REACTIONS (4)
  - ABNORMAL BEHAVIOUR [None]
  - HALLUCINATION, VISUAL [None]
  - HALLUCINATION, AUDITORY [None]
  - PRURITUS [None]
